FAERS Safety Report 4610518-4 (Version None)
Quarter: 2005Q2

REPORT INFORMATION
  Report Type: 
  Country: None (occurrence: None)
  Receive Date: 20050301
  Receipt Date: 20050125
  Transmission Date: 20051028
  Serious: No
  Sender: FDA-Public Use
  Company Number: WAES 0501USA03892

PATIENT
  Age: 64 Year
  Sex: Female

DRUGS (8)
  1. ZETIA [Suspect]
     Indication: HYPERCHOLESTEROLAEMIA
     Dosage: 10 MG/ DAILY/ PO
     Route: 048
  2. ZOCOR [Suspect]
     Dosage: PO
     Route: 048
  3. FORADIL [Concomitant]
  4. HYDRODIURIL [Concomitant]
  5. LOTREL [Concomitant]
  6. PULMICORT [Concomitant]
  7. SINGULAIR [Concomitant]
  8. ALBUTEROL [Concomitant]

REACTIONS (1)
  - VISUAL ACUITY REDUCED [None]
